FAERS Safety Report 23625797 (Version 1)
Quarter: 2024Q1

REPORT INFORMATION
  Report Type: Spontaneous
  Country: US (occurrence: US)
  Receive Date: 20240313
  Receipt Date: 20240313
  Transmission Date: 20240410
  Serious: No
  Sender: FDA-Public Use
  Company Number: US-APOTEX-2023AP016415

PATIENT
  Sex: Male

DRUGS (1)
  1. FLUTICASONE PROPIONATE [Suspect]
     Active Substance: FLUTICASONE PROPIONATE
     Indication: Product used for unknown indication
     Dosage: 4 DOSAGE FORM (2 SPRAYS IN EACH NOSTRIL)
     Route: 045
     Dates: start: 20231106

REACTIONS (4)
  - Sinus congestion [Unknown]
  - Dyspnoea [Unknown]
  - Product after taste [Unknown]
  - Headache [Unknown]

NARRATIVE: CASE EVENT DATE: 20231106
